FAERS Safety Report 5446010-7 (Version None)
Quarter: 2007Q3

REPORT INFORMATION
  Report Type: 
  Country: None (occurrence: None)
  Receive Date: 20070907
  Receipt Date: 20070903
  Transmission Date: 20080115
  Serious: Yes (Death, Hospitalization)
  Sender: FDA-Public Use
  Company Number: US-JNJFOC-20070603155

PATIENT
  Sex: Male

DRUGS (34)
  1. ETRAVIRINE [Suspect]
     Dosage: TEMPORARILY STOPPED
     Route: 048
  2. ETRAVIRINE [Suspect]
     Indication: HIV INFECTION
     Route: 048
  3. PREZISTA [Suspect]
     Route: 048
  4. PREZISTA [Suspect]
     Indication: HIV INFECTION
     Route: 048
  5. MK-0518 [Suspect]
     Route: 048
  6. MK-0518 [Suspect]
     Route: 048
  7. MK-0518 [Suspect]
     Indication: HIV INFECTION
     Route: 048
  8. RITONAVIR [Suspect]
     Route: 048
  9. RITONAVIR [Suspect]
     Route: 048
  10. RITONAVIR [Suspect]
     Indication: HIV INFECTION
     Route: 048
  11. TENOFOVIR DISOPROXIL FUMARATE [Suspect]
     Route: 048
  12. TENOFOVIR DISOPROXIL FUMARATE [Suspect]
     Route: 048
  13. TENOFOVIR DISOPROXIL FUMARATE [Suspect]
     Indication: HIV INFECTION
     Route: 048
  14. EPZICOM [Suspect]
     Route: 048
  15. EPZICOM [Suspect]
     Route: 048
  16. EPZICOM [Suspect]
     Indication: HIV INFECTION
     Route: 048
  17. PREVACID [Concomitant]
     Route: 065
  18. VALTREX [Concomitant]
     Route: 065
  19. SINGULAIR [Concomitant]
     Route: 065
  20. HYDROCHLOROTHIAZIDE [Concomitant]
     Route: 065
  21. NASONEX [Concomitant]
     Route: 065
  22. MOTRIN [Concomitant]
     Route: 065
  23. MEPRON [Concomitant]
     Route: 065
  24. ALTACE [Concomitant]
     Route: 065
  25. WELLBUTRIN [Concomitant]
     Route: 065
  26. VICODIN [Concomitant]
     Route: 065
  27. AZITHROMYCIN [Concomitant]
     Route: 065
  28. COLCHICINE [Concomitant]
     Route: 065
  29. IMODIUM A-D [Concomitant]
     Route: 065
  30. OMEGA-3 MARINE TRIGLYCERIDES [Concomitant]
     Route: 065
  31. VITAMIN E [Concomitant]
     Route: 065
  32. MAXZIDE [Concomitant]
     Route: 065
  33. AVELOX [Concomitant]
     Route: 065
  34. PROMETHAZINE [Concomitant]
     Route: 065

REACTIONS (5)
  - ACQUIRED IMMUNODEFICIENCY SYNDROME [None]
  - BRAIN ABSCESS [None]
  - NON-HODGKIN'S LYMPHOMA [None]
  - PNEUMONIA [None]
  - SINUSITIS [None]
